FAERS Safety Report 5873740-5 (Version None)
Quarter: 2008Q3

REPORT INFORMATION
  Report Type: 
  Country: None (occurrence: None)
  Receive Date: 20080904
  Receipt Date: 20080904
  Transmission Date: 20090109
  Serious: Yes (Hospitalization)
  Sender: FDA-Public Use
  Company Number: None

PATIENT
  Age: 14 Year
  Sex: Female
  Weight: 41 kg

DRUGS (4)
  1. TRILEPTAL [Suspect]
     Indication: CONVULSION
     Dosage: 600 MG BID PO
     Route: 048
     Dates: start: 20080611, end: 20080807
  2. KEPPRA [Concomitant]
  3. COUMADIN [Concomitant]
  4. CLARITIN [Concomitant]

REACTIONS (10)
  - HEPATIC FUNCTION ABNORMAL [None]
  - HYPERSENSITIVITY [None]
  - LEUKOPENIA [None]
  - MULTI-ORGAN DISORDER [None]
  - NEUTROPENIA [None]
  - PLATELET DISORDER [None]
  - PYREXIA [None]
  - RASH MACULO-PAPULAR [None]
  - RENAL DISORDER [None]
  - UNRESPONSIVE TO STIMULI [None]
